FAERS Safety Report 4970696-4 (Version None)
Quarter: 2006Q2

REPORT INFORMATION
  Report Type: 
  Country: None (occurrence: None)
  Receive Date: 20060406
  Receipt Date: 20060324
  Transmission Date: 20061013
  Serious: Yes (Other)
  Sender: FDA-Public Use
  Company Number: 2006-00689

PATIENT
  Age: 62 Year
  Sex: Male
  Weight: 75 kg

DRUGS (5)
  1. VELCADE [Suspect]
     Dosage: 1.30 MG/M2
     Dates: start: 20060227
  2. MORPHINE SULFATE [Concomitant]
  3. DEXAMETHASONE [Concomitant]
  4. PRIMPERAN TAB [Concomitant]
  5. CALCIUM SANDOZ FORTE D (COLECALCIFEROL,CALCIUM GLUCEPTATE, CALCIUM CAR [Concomitant]

REACTIONS (4)
  - AGGRESSION [None]
  - CONFUSIONAL STATE [None]
  - DELIRIUM [None]
  - HALLUCINATION, VISUAL [None]
